FAERS Safety Report 8853375 (Version 1)
Quarter: 2012Q4

REPORT INFORMATION
  Report Type: Report from Study
  Country: GB (occurrence: GB)
  Receive Date: 20121022
  Receipt Date: 20121022
  Transmission Date: 20130627
  Serious: Yes (Hospitalization)
  Sender: FDA-Public Use
  Company Number: GB-GLAXOSMITHKLINE-B0833884B

PATIENT
  Age: 56 Year
  Sex: Female

DRUGS (7)
  1. OFATUMUMAB [Suspect]
     Indication: RICHTER^S SYNDROME
     Dosage: 1000MG Cyclic
     Route: 042
     Dates: start: 20120905
  2. CYCLOPHOSPHAMIDE [Suspect]
     Indication: RICHTER^S SYNDROME
     Dosage: 1600MG Cyclic
     Route: 042
     Dates: start: 20120905
  3. VINCRISTINE [Suspect]
     Indication: RICHTER^S SYNDROME
     Dosage: 2MG Cyclic
     Route: 042
     Dates: start: 20120905
  4. DOXORUBICIN [Suspect]
     Indication: RICHTER^S SYNDROME
     Dosage: 105MG Cyclic
     Route: 042
     Dates: start: 20120905
  5. PREDNISOLONE [Concomitant]
     Indication: RICHTER^S SYNDROME
     Dosage: 85MG Cyclic
     Route: 048
     Dates: start: 20120905
  6. ACICLOVIR [Concomitant]
     Indication: ANTIVIRAL TREATMENT
     Dosage: 200MG Four times per day
     Route: 048
     Dates: start: 20120917
  7. RANITIDINE [Concomitant]
     Indication: ANTACID THERAPY
     Dosage: 150MG Twice per day
     Route: 048
     Dates: start: 20120917

REACTIONS (1)
  - Febrile neutropenia [Recovering/Resolving]
